FAERS Safety Report 9007956 (Version 1)
Quarter: 2013Q1

REPORT INFORMATION
  Report Type: Spontaneous
  Country: US (occurrence: US)
  Receive Date: 20130111
  Receipt Date: 20130111
  Transmission Date: 20140127
  Serious: Yes (Other)
  Sender: FDA-Public Use
  Company Number: US-009507513-1012USA00641

PATIENT
  Age: 9 Year
  Sex: Male
  Weight: 22.68 kg

DRUGS (2)
  1. SINGULAIR [Suspect]
     Indication: MULTIPLE ALLERGIES
     Dosage: 5 MG, QD
     Route: 048
     Dates: start: 20070101, end: 20100314
  2. ALBUTEROL [Concomitant]
     Dosage: UNK UNK, PRN

REACTIONS (3)
  - Self injurious behaviour [Unknown]
  - Dizziness [Unknown]
  - Headache [Unknown]
